FAERS Safety Report 12738927 (Version 2)
Quarter: 2016Q3

REPORT INFORMATION
  Report Type: Report from Study
  Country: US (occurrence: US)
  Receive Date: 20160913
  Receipt Date: 20160919
  Transmission Date: 20161109
  Serious: Yes (Hospitalization, Other)
  Sender: FDA-Public Use
  Company Number: US-GILEAD-2016-0232891

PATIENT
  Age: 65 Year
  Sex: Female

DRUGS (3)
  1. AMBRISENTAN [Suspect]
     Active Substance: AMBRISENTAN
     Indication: PRODUCT USED FOR UNKNOWN INDICATION
     Dosage: 5 MG, QD
     Route: 065
     Dates: start: 20121220
  2. ADCIRCA [Concomitant]
     Active Substance: TADALAFIL
  3. TYVASO [Suspect]
     Active Substance: TREPROSTINIL
     Indication: PRODUCT USED FOR UNKNOWN INDICATION
     Route: 065

REACTIONS (9)
  - Endotracheal intubation [Unknown]
  - Hypotension [Unknown]
  - Cardiac failure [Not Recovered/Not Resolved]
  - Gastrostomy [Not Recovered/Not Resolved]
  - Hypertension [Unknown]
  - Myocardial infarction [Unknown]
  - Dysphagia [Unknown]
  - Dyspnoea [Unknown]
  - Oedema [Unknown]
